FAERS Safety Report 4970055-4 (Version None)
Quarter: 2006Q2

REPORT INFORMATION
  Report Type: 
  Country: None (occurrence: None)
  Receive Date: 20060406
  Receipt Date: 20060323
  Transmission Date: 20061013
  Serious: Yes (Hospitalization)
  Sender: FDA-Public Use
  Company Number: EM2006-0196

PATIENT
  Sex: Female

DRUGS (1)
  1. TOBI [Suspect]
     Indication: BRONCHIECTASIS
     Dosage: INHALATION
     Route: 055
     Dates: start: 20060201

REACTIONS (3)
  - DYSPHONIA [None]
  - MALAISE [None]
  - THROMBOSIS [None]
